FAERS Safety Report 19781650 (Version 1)
Quarter: 2021Q3

REPORT INFORMATION
  Report Type: Spontaneous
  Country: US (occurrence: US)
  Receive Date: 20210902
  Receipt Date: 20210902
  Transmission Date: 20211014
  Serious: Yes (Hospitalization, Congenital Anomaly, Other)
  Sender: FDA-Public Use
  Company Number: US-GLAXOSMITHKLINE-US2021GSK176935

PATIENT
  Sex: Male

DRUGS (10)
  1. ATOVAQUONE. [Suspect]
     Active Substance: ATOVAQUONE
     Dosage: 20 MG/KG, Z (EVERY 12 HOURS)
     Route: 063
  2. AZITHROMYCIN ANHYDROUS. [Suspect]
     Active Substance: AZITHROMYCIN ANHYDROUS
     Dosage: 10 MG/KG, QD ON DAY 1
     Route: 048
  3. AMOXYCILLIN [Suspect]
     Active Substance: AMOXICILLIN
     Indication: BABESIOSIS
     Dosage: UNK
     Route: 064
  4. AMOXYCILLIN [Suspect]
     Active Substance: AMOXICILLIN
     Dosage: UNK
  5. CEFUROXIME. [Suspect]
     Active Substance: CEFUROXIME
     Indication: LYME DISEASE
     Dosage: UNK
     Route: 063
  6. ATOVAQUONE. [Suspect]
     Active Substance: ATOVAQUONE
     Indication: BABESIOSIS
     Dosage: UNK
  7. AZITHROMYCIN ANHYDROUS. [Suspect]
     Active Substance: AZITHROMYCIN ANHYDROUS
     Indication: BABESIOSIS
     Dosage: UNK
     Route: 063
  8. AZITHROMYCIN ANHYDROUS. [Suspect]
     Active Substance: AZITHROMYCIN ANHYDROUS
     Dosage: 5 MG/KG, QD
     Route: 048
  9. AZITHROMYCIN ANHYDROUS. [Suspect]
     Active Substance: AZITHROMYCIN ANHYDROUS
     Dosage: 15 MG/KG, 1D
     Route: 048
  10. CEFTRIAXONE. [Suspect]
     Active Substance: CEFTRIAXONE
     Indication: LYME DISEASE
     Dosage: UNK
     Route: 063

REACTIONS (11)
  - Babesiosis [Recovered/Resolved]
  - Erythema migrans [Recovered/Resolved]
  - Haemoglobin decreased [Recovered/Resolved]
  - Hypersomnia [Recovered/Resolved]
  - Neutropenia neonatal [Recovered/Resolved]
  - Premature baby [Unknown]
  - Foetal exposure during pregnancy [Unknown]
  - Neonatal respiratory distress [Recovered/Resolved]
  - Vertical infection transmission [Recovered/Resolved]
  - Parasite blood test positive [Recovered/Resolved]
  - Exposure via breast milk [Unknown]
